FAERS Safety Report 15475158 (Version 2)
Quarter: 2018Q4

REPORT INFORMATION
  Report Type: Report from Study
  Country: IN (occurrence: IN)
  Receive Date: 20181008
  Receipt Date: 20181015
  Transmission Date: 20190205
  Serious: Yes (Other)
  Sender: FDA-Public Use
  Company Number: IN-PFIZER INC-2018400288

PATIENT

DRUGS (3)
  1. PROPOFOL. [Suspect]
     Active Substance: PROPOFOL
     Indication: LARYNGEAL MASK AIRWAY INSERTION
     Dosage: 2 MG/KG, UNK (GIVEN OVER 30 S FOR INDUCTION)
     Route: 042
  2. PROPOFOL. [Suspect]
     Active Substance: PROPOFOL
     Dosage: 0.5 MG/KG, UNK
  3. DEXMEDETOMIDINE HYDROCHLORIDE. [Suspect]
     Active Substance: DEXMEDETOMIDINE HYDROCHLORIDE
     Indication: LARYNGEAL MASK AIRWAY INSERTION
     Dosage: 1 UG/KG, UNK (OVER 2 MIN)
     Route: 042

REACTIONS (1)
  - Airway complication of anaesthesia [Unknown]
